FAERS Safety Report 20392403 (Version 1)
Quarter: 2022Q1

REPORT INFORMATION
  Report Type: Spontaneous
  Country: US (occurrence: None)
  Receive Date: 20220128
  Receipt Date: 20220128
  Transmission Date: 20220424
  Serious: Yes (Death)
  Sender: FDA-Public Use
  Company Number: None

PATIENT
  Age: 37 Year
  Sex: Female

DRUGS (1)
  1. BOTOX [Suspect]
     Active Substance: ONABOTULINUMTOXINA
     Indication: Quadriplegia
     Dosage: OTHER FREQUENCY : OTHER;?
     Route: 030
     Dates: start: 202103, end: 202105

REACTIONS (1)
  - Death [None]

NARRATIVE: CASE EVENT DATE: 20211225
